FAERS Safety Report 24273540 (Version 1)
Quarter: 2024Q3

REPORT INFORMATION
  Report Type: Spontaneous
  Country: US (occurrence: US)
  Receive Date: 20240902
  Receipt Date: 20240902
  Transmission Date: 20241016
  Serious: No
  Sender: RECKITT BENCKISER
  Company Number: US-PROD-AS2-212756134-RB-089470-2024

PATIENT
  Sex: Female

DRUGS (1)
  1. MUCINEX [Suspect]
     Active Substance: GUAIFENESIN
     Indication: Product used for unknown indication
     Dosage: UNK
     Route: 065

REACTIONS (4)
  - Frustration tolerance decreased [Not Recovered/Not Resolved]
  - Nausea [Not Recovered/Not Resolved]
  - Product complaint [Unknown]
  - Product after taste [Unknown]

NARRATIVE: CASE EVENT DATE: 20240429
